FAERS Safety Report 6715075-4 (Version None)
Quarter: 2010Q2

REPORT INFORMATION
  Report Type: 
  Country: None (occurrence: None)
  Receive Date: 20100506
  Receipt Date: 20100506
  Transmission Date: 20101027
  Serious: Yes (Other)
  Sender: FDA-Public Use
  Company Number: None

PATIENT
  Sex: Female
  Weight: 50.8029 kg

DRUGS (1)
  1. ALENDRONATE SODIUM [Suspect]
     Indication: BONE SCAN
     Dosage: 70 MG WEEKLY ORALLY
     Route: 048
     Dates: start: 20050820, end: 20100306

REACTIONS (1)
  - PAIN IN EXTREMITY [None]
